FAERS Safety Report 5125353-0 (Version None)
Quarter: 2006Q4

REPORT INFORMATION
  Report Type: 
  Country: None (occurrence: None)
  Receive Date: 20061011
  Receipt Date: 20060925
  Transmission Date: 20070319
  Serious: Yes (Other)
  Sender: FDA-Public Use
  Company Number: US-MERCK-0609USA05968

PATIENT
  Age: 35 Year
  Sex: Female

DRUGS (9)
  1. FOSAMAX [Suspect]
     Route: 048
     Dates: start: 20000901, end: 20060601
  2. MULTI-VITAMINS [Concomitant]
     Route: 065
  3. CALTRATE + D [Concomitant]
     Route: 065
  4. DRISDOL [Concomitant]
     Route: 065
  5. TREST [Concomitant]
     Route: 065
  6. FENTANYL [Concomitant]
     Route: 065
  7. LAMICTAL [Concomitant]
     Route: 065
  8. XANAX [Concomitant]
     Route: 065
  9. RITALIN [Concomitant]
     Route: 065

REACTIONS (4)
  - CONVULSION [None]
  - DYSPNOEA [None]
  - LARYNGITIS [None]
  - THROAT IRRITATION [None]
